FAERS Safety Report 8389936-7 (Version None)
Quarter: 2012Q2

REPORT INFORMATION
  Report Type: 
  Country: None (occurrence: None)
  Receive Date: 20120518
  Receipt Date: 20120421
  Transmission Date: 20120825
  Serious: Yes (Other)
  Sender: FDA-Public Use
  Company Number: 2012SA028463

PATIENT
  Age: 72 Year
  Sex: Male
  Weight: 98 kg

DRUGS (5)
  1. CAPZASIN [Suspect]
     Indication: ARTHROPATHY
     Dosage: TOPICAL
     Route: 061
     Dates: start: 20120302, end: 20120315
  2. CAPZASIN [Suspect]
     Indication: ARTHRITIS
     Dosage: TOPICAL
     Route: 061
     Dates: start: 20120302, end: 20120315
  3. PRAVASTATIN [Concomitant]
  4. FISH OIL [Concomitant]
  5. METFORMIN HCL [Concomitant]

REACTIONS (4)
  - APPLICATION SITE ERYTHEMA [None]
  - BURNS SECOND DEGREE [None]
  - DRUG INEFFECTIVE [None]
  - APPLICATION SITE PAIN [None]
